FAERS Safety Report 5638336-9 (Version None)
Quarter: 2008Q1

REPORT INFORMATION
  Report Type: 
  Country: None (occurrence: None)
  Receive Date: 20080226
  Receipt Date: 20080102
  Transmission Date: 20080703
  Serious: Yes (Life-Threatening, Hospitalization)
  Sender: FDA-Public Use
  Company Number: US-ASTRAZENECA-2008UW00059

PATIENT
  Age: 68 Year
  Sex: Male

DRUGS (6)
  1. METOPROLOL SUCCINATE [Suspect]
     Indication: CORONARY ARTERY DISEASE
     Route: 048
     Dates: start: 20070611
  2. OMEPRAZOLE [Suspect]
     Indication: CORONARY ARTERY DISEASE
     Route: 048
     Dates: start: 20070226
  3. ATORVASTATIN CALCIUM [Suspect]
     Indication: CORONARY ARTERY DISEASE
     Dates: start: 20070509
  4. NIFEDIPINE [Suspect]
     Indication: CORONARY ARTERY DISEASE
     Dates: start: 20070611
  5. OFATUMUMAB [Suspect]
     Indication: CHRONIC LYMPHOCYTIC LEUKAEMIA
     Dosage: 8 WEEKLY INFUSIONS (1 X 300 MG + 7 X 2000MG), FOLLOWED BY 4 MONTHLY INFUSIONS (2000MG).
     Route: 042
     Dates: start: 20071003, end: 20071031
  6. INSULIN ASPART [Concomitant]
     Dates: start: 20070509

REACTIONS (1)
  - MYOCARDIAL INFARCTION [None]
